FAERS Safety Report 11530193 (Version 1)
Quarter: 2015Q3

REPORT INFORMATION
  Report Type: Spontaneous
  Country: US (occurrence: US)
  Receive Date: 20150921
  Receipt Date: 20150921
  Transmission Date: 20151125
  Serious: No
  Sender: FDA-Public Use
  Company Number: US-GLAXOSMITHKLINE-US2015133056

PATIENT
  Age: 69 Year
  Sex: Female

DRUGS (11)
  1. LOSARTAN. [Concomitant]
     Active Substance: LOSARTAN
  2. VITAMIN A [Concomitant]
     Active Substance: VITAMIN A
  3. ATORVASTATIN [Concomitant]
     Active Substance: ATORVASTATIN
  4. PROAIR HFA [Concomitant]
     Active Substance: ALBUTEROL SULFATE
  5. RANITIDINE [Concomitant]
     Active Substance: RANITIDINE\RANITIDINE HYDROCHLORIDE
  6. ANORO ELLIPTA [Suspect]
     Active Substance: UMECLIDINIUM BROMIDE\VILANTEROL TRIFENATATE
     Indication: DYSPNOEA
     Dosage: 1 PUFF(S), 1D
     Route: 055
     Dates: start: 20150912
  7. AMLODIPINE [Concomitant]
     Active Substance: AMLODIPINE BESYLATE
  8. REVATIO [Concomitant]
     Active Substance: SILDENAFIL CITRATE
  9. ESTRADIOL. [Concomitant]
     Active Substance: ESTRADIOL
  10. LEVOTHYROXINE. [Concomitant]
     Active Substance: LEVOTHYROXINE
  11. ALPRAZOLAM. [Concomitant]
     Active Substance: ALPRAZOLAM

REACTIONS (2)
  - Activities of daily living impaired [Not Recovered/Not Resolved]
  - Vertigo [Not Recovered/Not Resolved]

NARRATIVE: CASE EVENT DATE: 20150912
